FAERS Safety Report 7722300-X (Version None)
Quarter: 2011Q3

REPORT INFORMATION
  Report Type: 
  Country: None (occurrence: None)
  Receive Date: 20110831
  Receipt Date: 20110824
  Transmission Date: 20111222
  Serious: Yes (Other)
  Sender: FDA-Public Use
  Company Number: US-TEVA-297943USA

PATIENT
  Sex: Female

DRUGS (8)
  1. NORTRIPTYLINE HCL [Suspect]
     Indication: SLEEP DISORDER
  2. GABAPENTIN [Suspect]
     Indication: RAPID EYE MOVEMENTS SLEEP ABNORMAL
     Dosage: 300 MILLIGRAM; HS
  3. CYCLOBENZAPRINE [Concomitant]
  4. ESOMEPRAZOLE MAGNESIUM [Suspect]
  5. HYDROCODONE BITARTRATE [Concomitant]
  6. ZINC [Concomitant]
  7. NORTRIPTYLINE HCL [Suspect]
     Indication: IRRITABLE BOWEL SYNDROME
     Dosage: ONE AT NIGHT
  8. ACETAMINOPHEN [Concomitant]

REACTIONS (5)
  - SLEEP APNOEA SYNDROME [None]
  - NIGHTMARE [None]
  - FIBROMYALGIA [None]
  - DYSPNOEA [None]
  - PREMATURE AGEING [None]
